FAERS Safety Report 12253795 (Version 2)
Quarter: 2016Q2

REPORT INFORMATION
  Report Type: Spontaneous
  Country: CA (occurrence: CA)
  Receive Date: 20160411
  Receipt Date: 20160411
  Transmission Date: 20160815
  Serious: Yes (Hospitalization)
  Sender: FDA-Public Use
  Company Number: CA-BAYER-2016-061254

PATIENT
  Age: 41 Year
  Sex: Male

DRUGS (5)
  1. IBUPROFEN. [Suspect]
     Active Substance: IBUPROFEN
     Dosage: UNK
  2. CIPRO [Suspect]
     Active Substance: CIPROFLOXACIN HYDROCHLORIDE
     Indication: URINARY TRACT INFECTION
     Dosage: 500 MG, BID
     Route: 048
  3. LIDOCAINE. [Suspect]
     Active Substance: LIDOCAINE
     Dosage: UNK
  4. METRONIDAZOLE. [Suspect]
     Active Substance: METRONIDAZOLE
     Dosage: UNK
  5. ANUSOL HC [Suspect]
     Active Substance: HYDROCORTISONE
     Dosage: UNK

REACTIONS (6)
  - Chromaturia [Unknown]
  - Pruritus [Unknown]
  - Jaundice [Unknown]
  - Hepatic enzyme increased [Unknown]
  - Fatigue [Unknown]
  - General physical health deterioration [Unknown]
